FAERS Safety Report 17877535 (Version 1)
Quarter: 2020Q2

REPORT INFORMATION
  Report Type: Report from Study
  Country: US (occurrence: US)
  Receive Date: 20200609
  Receipt Date: 20200609
  Transmission Date: 20200714
  Serious: Yes (Other)
  Sender: FDA-Public Use
  Company Number: US-GILEAD-2020-0470585

PATIENT
  Age: 77 Year
  Sex: Female

DRUGS (14)
  1. LANSOPRAZOLE. [Concomitant]
     Active Substance: LANSOPRAZOLE
  2. OFLOXACIN. [Concomitant]
     Active Substance: OFLOXACIN
  3. AMBRISENTAN [Suspect]
     Active Substance: AMBRISENTAN
     Indication: PULMONARY ARTERIAL HYPERTENSION
     Dosage: 5 MG, QD
     Route: 065
     Dates: start: 20180125
  4. LOPERAMIDE [Concomitant]
     Active Substance: LOPERAMIDE
  5. CALTRATE D [CALCIUM;COLECALCIFEROL] [Concomitant]
  6. DICYCLOMINE [Concomitant]
     Active Substance: DICYCLOMINE HYDROCHLORIDE
  7. ESTRADIOL. [Concomitant]
     Active Substance: ESTRADIOL
  8. FLORASTOR [LACTOBACILLUS ACIDOPHILUS] [Concomitant]
  9. OFEV [Suspect]
     Active Substance: NINTEDANIB
     Indication: PULMONARY ARTERIAL HYPERTENSION
     Route: 065
     Dates: start: 20191210
  10. RIFAXIMIN. [Concomitant]
     Active Substance: RIFAXIMIN
  11. XIFAXAN [Concomitant]
     Active Substance: RIFAXIMIN
  12. ALIGN [Concomitant]
     Active Substance: BIFIDOBACTERIUM LONGUM SUBSP. INFANTIS
  13. CYTOTEC [Concomitant]
     Active Substance: MISOPROSTOL
  14. FUROSEMIDE. [Concomitant]
     Active Substance: FUROSEMIDE

REACTIONS (3)
  - Scleroderma [Not Recovered/Not Resolved]
  - Gastrointestinal disorder [Not Recovered/Not Resolved]
  - Ear tube insertion [Not Recovered/Not Resolved]
